FAERS Safety Report 22163361 (Version 1)
Quarter: 2023Q2

REPORT INFORMATION
  Report Type: Spontaneous
  Country: CA (occurrence: CA)
  Receive Date: 20230401
  Receipt Date: 20230401
  Transmission Date: 20230722
  Serious: Yes (Other)
  Sender: FDA-Public Use
  Company Number: None

PATIENT
  Age: 83 Year
  Sex: Female

DRUGS (1)
  1. NITROGLYCERIN [Suspect]
     Active Substance: NITROGLYCERIN
     Indication: Chest pain
     Route: 062

REACTIONS (8)
  - Blood pressure increased [Unknown]
  - Chest pain [Unknown]
  - Chills [Unknown]
  - Cyanosis [Unknown]
  - Dyspnoea [Unknown]
  - Feeling cold [Unknown]
  - Heart rate increased [Unknown]
  - Hypersensitivity [Unknown]
